FAERS Safety Report 26183992 (Version 1)
Quarter: 2025Q4

REPORT INFORMATION
  Report Type: Report from Study
  Country: US (occurrence: US)
  Receive Date: 20251222
  Receipt Date: 20251222
  Transmission Date: 20260117
  Serious: Yes (Hospitalization, Disabling, Other)
  Sender: ABBVIE
  Company Number: US-ABBVIE-6599312

PATIENT
  Sex: Female
  Weight: 63 kg

DRUGS (2)
  1. HUMIRA [Suspect]
     Active Substance: ADALIMUMAB
     Indication: Product used for unknown indication
     Route: 058
  2. XELJANZ XR [Suspect]
     Active Substance: TOFACITINIB CITRATE
     Indication: Product used for unknown indication
     Route: 048
     Dates: start: 2015

REACTIONS (31)
  - Cervical vertebral fracture [Unknown]
  - Spinal cord injury [Unknown]
  - Disability [Unknown]
  - Blood disorder [Unknown]
  - Degenerative bone disease [Unknown]
  - Knee arthroplasty [Unknown]
  - Bone pain [Unknown]
  - Osteomyelitis [Unknown]
  - Bone disorder [Unknown]
  - Headache [Unknown]
  - Eye pain [Unknown]
  - Arthralgia [Unknown]
  - Pain [Unknown]
  - Fall [Unknown]
  - Head injury [Unknown]
  - Gait inability [Unknown]
  - Paralysis [Unknown]
  - Osteitis [Unknown]
  - Bone disorder [Unknown]
  - Back pain [Unknown]
  - Chronic kidney disease [Unknown]
  - Oral mucosal blistering [Not Recovered/Not Resolved]
  - Blister [Not Recovered/Not Resolved]
  - Contusion [Not Recovered/Not Resolved]
  - Gait disturbance [Unknown]
  - Vertigo [Unknown]
  - Neck pain [Unknown]
  - Muscle spasms [Unknown]
  - Myalgia [Unknown]
  - Myalgia [Unknown]
  - Respiratory arrest [Unknown]

NARRATIVE: CASE EVENT DATE: 20210101
